FAERS Safety Report 7194399-3 (Version None)
Quarter: 2010Q4

REPORT INFORMATION
  Report Type: 
  Country: None (occurrence: None)
  Receive Date: 20101124
  Receipt Date: 20101013
  Transmission Date: 20110411
  Serious: Yes (Death, Other)
  Sender: FDA-Public Use
  Company Number: 018612

PATIENT
  Age: 73 Year
  Sex: Female
  Weight: 52 kg

DRUGS (5)
  1. LACOSAMIDE [Suspect]
     Indication: OFF LABEL USE
     Dosage: (200 MG BID INTRAVENOUS (NOT OTHERWISE SPECIFIED))
     Route: 042
  2. LACOSAMIDE [Suspect]
     Indication: STATUS EPILEPTICUS
     Dosage: (200 MG BID INTRAVENOUS (NOT OTHERWISE SPECIFIED))
     Route: 042
  3. KEPPRA [Suspect]
     Indication: STATUS EPILEPTICUS
     Dosage: (1500 MG BID)
  4. PHENYTOIN [Suspect]
     Indication: STATUS EPILEPTICUS
     Dosage: (100 MG TID)
  5. CEFEPIME [Concomitant]

REACTIONS (2)
  - ANGIOEDEMA [None]
  - HAEMORRHAGE INTRACRANIAL [None]
